FAERS Safety Report 23597523 (Version 1)
Quarter: 2024Q1

REPORT INFORMATION
  Report Type: Spontaneous
  Country: US (occurrence: None)
  Receive Date: 20240305
  Receipt Date: 20240305
  Transmission Date: 20240409
  Serious: Yes (Other)
  Sender: FDA-Public Use
  Company Number: 2024A052595

PATIENT
  Age: 62 Year
  Sex: Female

DRUGS (9)
  1. QUETIAPINE [Suspect]
     Active Substance: QUETIAPINE
     Route: 048
  2. INGREZZA [Suspect]
     Active Substance: VALBENAZINE
     Dates: start: 20231212
  3. INGREZZA [Suspect]
     Active Substance: VALBENAZINE
     Dates: start: 20240112
  4. TRAZODONE [Concomitant]
     Active Substance: TRAZODONE HYDROCHLORIDE
  5. LITHIUM [Concomitant]
     Active Substance: LITHIUM
  6. CARUEDILOL [Concomitant]
  7. DEPLIN [Concomitant]
     Active Substance: LEVOMEFOLATE CALCIUM
  8. DULOXETINE [Concomitant]
     Active Substance: DULOXETINE
  9. ROSUVASTATIN [Concomitant]
     Active Substance: ROSUVASTATIN

REACTIONS (5)
  - Huntington^s disease [Unknown]
  - Breast cancer [Unknown]
  - Anxiety [Recovered/Resolved]
  - Pruritus [Recovered/Resolved]
  - Bite [Unknown]

NARRATIVE: CASE EVENT DATE: 20240105
